FAERS Safety Report 5266897-0 (Version None)
Quarter: 2007Q1

REPORT INFORMATION
  Report Type: 
  Country: None (occurrence: None)
  Receive Date: 20070316
  Receipt Date: 20070312
  Transmission Date: 20070707
  Serious: Yes (Hospitalization)
  Sender: FDA-Public Use
  Company Number: JP-BRACCO-BRO-011560

PATIENT
  Age: 76 Year
  Sex: Male

DRUGS (1)
  1. IOPAMIRON [Suspect]
     Indication: COMPUTERISED TOMOGRAM
     Route: 042
     Dates: start: 20070302, end: 20070302

REACTIONS (3)
  - BLOOD PRESSURE DECREASED [None]
  - CYANOSIS [None]
  - WHEEZING [None]
